FAERS Safety Report 7737810-9 (Version None)
Quarter: 2011Q3

REPORT INFORMATION
  Report Type: 
  Country: None (occurrence: None)
  Receive Date: 20110908
  Receipt Date: 20110829
  Transmission Date: 20111222
  Serious: Yes (Hospitalization, Other)
  Sender: FDA-Public Use
  Company Number: PHHY2011JP42976

PATIENT
  Age: 12 Year
  Sex: Female

DRUGS (6)
  1. CYCLOPHOSPHAMIDE [Concomitant]
     Indication: GLOMERULONEPHRITIS MINIMAL LESION
  2. CYCLOSPORINE [Suspect]
     Indication: GLOMERULONEPHRITIS MINIMAL LESION
  3. MIZORIBINE [Concomitant]
     Route: 048
  4. METHYLPREDNISOLONE [Concomitant]
     Indication: GLOMERULONEPHRITIS MINIMAL LESION
  5. MYCOPHENOLATE MOFETIL [Concomitant]
     Indication: GLOMERULONEPHRITIS MINIMAL LESION
     Route: 048
  6. PREDNISOLONE [Concomitant]
     Indication: GLOMERULONEPHRITIS MINIMAL LESION

REACTIONS (6)
  - SPINAL COMPRESSION FRACTURE [None]
  - STEROID WITHDRAWAL SYNDROME [None]
  - VOMITING [None]
  - OSTEOPOROSIS [None]
  - NAUSEA [None]
  - HEADACHE [None]
